FAERS Safety Report 10280675 (Version 1)
Quarter: 2014Q3

REPORT INFORMATION
  Report Type: Spontaneous
  Country: FR (occurrence: FR)
  Receive Date: 20140707
  Receipt Date: 20140707
  Transmission Date: 20150326
  Serious: Yes (Hospitalization, Other)
  Sender: FDA-Public Use
  Company Number: FR-PFIZER INC-2014175414

PATIENT
  Age: 50 Year
  Sex: Female
  Weight: 71 kg

DRUGS (8)
  1. COLTRAMYL [Suspect]
     Active Substance: THIOCOLCHICOSIDE
     Dosage: 4 MG, 3X/DAY
     Route: 048
     Dates: start: 20131213, end: 20131216
  2. LYRICA [Suspect]
     Active Substance: PREGABALIN
     Dosage: 100 MG IN THE MORNING AND 150 MG IN THE EVENING
     Route: 048
     Dates: start: 20131213, end: 20131218
  3. PROFENID [Suspect]
     Active Substance: KETOPROFEN
     Dosage: 1 DF, 2X/DAY
     Route: 042
     Dates: start: 20131212, end: 20131215
  4. ACTISKENAN [Concomitant]
     Active Substance: MORPHINE SULFATE
     Dosage: UNK
     Dates: start: 20131213
  5. BI PROFENID [Suspect]
     Active Substance: KETOPROFEN
     Dosage: 1 DF, 2X/DAY
     Route: 048
     Dates: start: 20131216, end: 20131220
  6. VANCOMYCIN MYLAN [Suspect]
     Active Substance: VANCOMYCIN
     Dosage: 2 G, 1X/DAY
     Route: 042
     Dates: start: 20131212, end: 20131220
  7. COLTRAMYL [Suspect]
     Active Substance: THIOCOLCHICOSIDE
     Dosage: 4 MG, DAILY
     Route: 048
     Dates: start: 20131217, end: 20131220
  8. SKENAN [Concomitant]
     Active Substance: MORPHINE SULFATE
     Dosage: UNK
     Dates: start: 20131213

REACTIONS (5)
  - Oedema peripheral [Unknown]
  - Hypoventilation [Unknown]
  - Renal failure acute [Recovered/Resolved]
  - Fluid overload [Unknown]
  - Overweight [Recovered/Resolved]

NARRATIVE: CASE EVENT DATE: 20131221
